FAERS Safety Report 7108745-X (Version None)
Quarter: 2010Q4

REPORT INFORMATION
  Report Type: 
  Country: None (occurrence: None)
  Receive Date: 20101117
  Receipt Date: 20101108
  Transmission Date: 20110411
  Serious: Yes (Hospitalization)
  Sender: FDA-Public Use
  Company Number: SE-ASTRAZENECA-2010SE53374

PATIENT
  Age: 44 Year
  Sex: Male

DRUGS (5)
  1. FELODIPINE [Suspect]
     Indication: ESSENTIAL HYPERTENSION
     Route: 048
     Dates: start: 20091121, end: 20091123
  2. SERETIDE DISKUS [Concomitant]
  3. METADON NORDIC [Concomitant]
     Route: 048
  4. VENTOLIN [Concomitant]
  5. DOLCONTIN [Concomitant]

REACTIONS (3)
  - DEPRESSED LEVEL OF CONSCIOUSNESS [None]
  - PRURITUS [None]
  - RESPIRATORY DEPRESSION [None]
